FAERS Safety Report 20755745 (Version 2)
Quarter: 2022Q2

REPORT INFORMATION
  Report Type: Spontaneous
  Country: US (occurrence: US)
  Receive Date: 20220427
  Receipt Date: 20220427
  Transmission Date: 20220720
  Serious: Yes (Hospitalization, Other)
  Sender: FDA-Public Use
  Company Number: US-TOPROL-2022000127

PATIENT
  Age: 81 Year
  Sex: Female
  Weight: 147 kg

DRUGS (41)
  1. METOPROLOL SUCCINATE [Suspect]
     Active Substance: METOPROLOL SUCCINATE
     Indication: Product used for unknown indication
     Route: 048
  2. JAKAFI [Suspect]
     Active Substance: RUXOLITINIB
     Indication: Myelofibrosis
     Dosage: BID
     Route: 048
     Dates: start: 20190821
  3. JAKAFI [Suspect]
     Active Substance: RUXOLITINIB
     Indication: Myelofibrosis
     Dosage: BID
     Route: 048
     Dates: start: 20190821
  4. JAKAFI [Suspect]
     Active Substance: RUXOLITINIB
     Indication: Myelofibrosis
     Dosage: QHS
     Route: 048
     Dates: start: 20190904
  5. JAKAFI [Suspect]
     Active Substance: RUXOLITINIB
     Indication: Myelofibrosis
     Dosage: QD
     Route: 048
     Dates: start: 20190821
  6. JAKAFI [Suspect]
     Active Substance: RUXOLITINIB
     Indication: Myelofibrosis
     Dosage: QHS
     Route: 048
     Dates: start: 20190821
  7. JAKAFI [Suspect]
     Active Substance: RUXOLITINIB
     Indication: Myelofibrosis
     Dosage: QAM
     Route: 048
     Dates: start: 20190821
  8. JAKAFI [Suspect]
     Active Substance: RUXOLITINIB
     Indication: Myelofibrosis
     Dosage: BID
     Route: 048
     Dates: start: 20190821
  9. JAKAFI [Suspect]
     Active Substance: RUXOLITINIB
     Indication: Myelofibrosis
     Dosage: BID
     Route: 048
     Dates: start: 20190821
  10. JAKAFI [Suspect]
     Active Substance: RUXOLITINIB
     Indication: Myelofibrosis
     Dosage: BID
     Route: 048
     Dates: start: 20190821
  11. JAKAFI [Suspect]
     Active Substance: RUXOLITINIB
     Indication: Myelofibrosis
     Dosage: BID
     Route: 048
     Dates: start: 20190831
  12. JAKAFI [Suspect]
     Active Substance: RUXOLITINIB
     Indication: Myelofibrosis
     Dosage: BID
     Route: 048
     Dates: start: 20190821
  13. JAKAFI [Suspect]
     Active Substance: RUXOLITINIB
     Indication: Myelofibrosis
     Dosage: BID
     Route: 048
     Dates: start: 20190821, end: 20200324
  14. JAKAFI [Suspect]
     Active Substance: RUXOLITINIB
     Indication: Myelofibrosis
     Route: 048
     Dates: start: 20200401
  15. JAKAFI [Suspect]
     Active Substance: RUXOLITINIB
     Indication: Myelofibrosis
     Route: 048
     Dates: start: 20200422
  16. JAKAFI [Suspect]
     Active Substance: RUXOLITINIB
     Indication: Myelofibrosis
     Dosage: QD
     Route: 048
     Dates: start: 20190821
  17. JAKAFI [Suspect]
     Active Substance: RUXOLITINIB
     Indication: Myelofibrosis
     Dosage: QD
     Route: 048
     Dates: start: 20190821
  18. JAKAFI [Suspect]
     Active Substance: RUXOLITINIB
     Indication: Myelofibrosis
     Dosage: QD
     Route: 048
     Dates: start: 20200310
  19. JAKAFI [Suspect]
     Active Substance: RUXOLITINIB
     Indication: Myelofibrosis
     Dosage: QD
     Route: 048
     Dates: start: 20190821
  20. JAKAFI [Suspect]
     Active Substance: RUXOLITINIB
     Indication: Myelofibrosis
     Dosage: QD
     Route: 048
     Dates: start: 20200304
  21. JAKAFI [Suspect]
     Active Substance: RUXOLITINIB
     Indication: Myelofibrosis
     Dosage: QD
     Route: 048
  22. JAKAFI [Suspect]
     Active Substance: RUXOLITINIB
     Indication: Myelofibrosis
     Dosage: QD
     Route: 048
     Dates: start: 20190821
  23. JAKAFI [Suspect]
     Active Substance: RUXOLITINIB
     Indication: Myelofibrosis
     Dosage: QD
     Route: 048
     Dates: start: 20190821
  24. JAKAFI [Suspect]
     Active Substance: RUXOLITINIB
     Indication: Myelofibrosis
     Dosage: QD
     Route: 048
     Dates: start: 20190821
  25. JAKAFI [Suspect]
     Active Substance: RUXOLITINIB
     Indication: Myelofibrosis
     Dosage: QD
     Route: 048
     Dates: start: 20190821
  26. JAKAFI [Suspect]
     Active Substance: RUXOLITINIB
     Indication: Myelofibrosis
     Dosage: QD
     Route: 048
     Dates: start: 20190821
  27. JAKAFI [Suspect]
     Active Substance: RUXOLITINIB
     Indication: Myelofibrosis
     Dosage: QD
     Route: 048
     Dates: start: 20190821
  28. JAKAFI [Suspect]
     Active Substance: RUXOLITINIB
     Indication: Myelofibrosis
     Dosage: QD
     Route: 048
     Dates: start: 20190821
  29. MODERNA COVID-19 VACCINE [Suspect]
     Active Substance: ELASOMERAN
     Indication: Product used for unknown indication
  30. TYLENOL ARTHRITIS PAIN [Suspect]
     Active Substance: ACETAMINOPHEN
     Indication: Arthritis
     Route: 048
  31. CRESTOR [Suspect]
     Active Substance: ROSUVASTATIN CALCIUM
     Indication: Product used for unknown indication
  32. SYNTHROID [Concomitant]
     Active Substance: LEVOTHYROXINE SODIUM
     Indication: Product used for unknown indication
     Route: 048
  33. SYNTHROID [Concomitant]
     Active Substance: LEVOTHYROXINE SODIUM
     Indication: Product used for unknown indication
  34. TIKOSYN [Concomitant]
     Active Substance: DOFETILIDE
     Indication: Product used for unknown indication
  35. SPIRONOLACTONE [Concomitant]
     Active Substance: SPIRONOLACTONE
     Indication: Product used for unknown indication
  36. ELIQUIS [Concomitant]
     Active Substance: APIXABAN
     Indication: Product used for unknown indication
     Route: 048
  37. IRON [Concomitant]
     Active Substance: IRON
     Indication: Product used for unknown indication
  38. LASIX [Concomitant]
     Active Substance: FUROSEMIDE
     Indication: Product used for unknown indication
     Route: 048
  39. LOSARTAN [Concomitant]
     Active Substance: LOSARTAN
     Indication: Product used for unknown indication
     Route: 048
  40. VITAMINS [Concomitant]
     Active Substance: VITAMINS
     Indication: Product used for unknown indication
  41. MINERALS\VITAMINS [Concomitant]
     Active Substance: MINERALS\VITAMINS
     Indication: Product used for unknown indication

REACTIONS (61)
  - Pneumonia [Unknown]
  - Pyrexia [Unknown]
  - Chills [Unknown]
  - Neutrophil count decreased [Unknown]
  - White blood cell count decreased [Unknown]
  - Sepsis [Unknown]
  - Cardiac failure [Unknown]
  - Neuropathy peripheral [Unknown]
  - Haemoglobin decreased [Unknown]
  - Malignant neoplasm progression [Unknown]
  - Pulmonary embolism [Unknown]
  - Arrhythmia [Unknown]
  - Malaise [Unknown]
  - Feeling abnormal [Unknown]
  - Abdominal distension [Unknown]
  - Fall [Unknown]
  - Concussion [Unknown]
  - Pain in jaw [Unknown]
  - Sinusitis [Unknown]
  - Confusional state [Unknown]
  - Pain [Unknown]
  - Ear discomfort [Unknown]
  - Rash [Unknown]
  - Stomatitis [Unknown]
  - Toothache [Unknown]
  - Oral pain [Unknown]
  - Pain [Unknown]
  - Product dose omission issue [Unknown]
  - Wrong technique in product usage process [Unknown]
  - Dizziness [Unknown]
  - Headache [Unknown]
  - Balance disorder [Unknown]
  - Abdominal pain upper [Unknown]
  - Flatulence [Unknown]
  - Constipation [Unknown]
  - Asthenia [Unknown]
  - Nausea [Unknown]
  - Blood cholesterol increased [Unknown]
  - Nasal dryness [Unknown]
  - Vascular rupture [Unknown]
  - Epistaxis [Unknown]
  - Hypersensitivity [Unknown]
  - Pain in extremity [Unknown]
  - Foot fracture [Unknown]
  - Ligament sprain [Unknown]
  - Arthropathy [Unknown]
  - Dyspepsia [Unknown]
  - Faeces discoloured [Unknown]
  - Memory impairment [Unknown]
  - Bladder disorder [Unknown]
  - Lip swelling [Unknown]
  - Pruritus [Unknown]
  - Paraesthesia [Unknown]
  - Glossodynia [Unknown]
  - Feeding disorder [Unknown]
  - Blood pressure abnormal [Unknown]
  - Heart rate increased [Unknown]
  - Arthritis [Unknown]
  - Fatigue [Unknown]
  - Arthralgia [Unknown]
  - Urinary tract infection [Unknown]

NARRATIVE: CASE EVENT DATE: 20190815
